FAERS Safety Report 14662212 (Version 1)
Quarter: 2018Q1

REPORT INFORMATION
  Report Type: Report from Study
  Country: US (occurrence: US)
  Receive Date: 20180321
  Receipt Date: 20180321
  Transmission Date: 20180509
  Serious: Yes (Death)
  Sender: FDA-Public Use
  Company Number: US-CIPLA LTD.-2018US12307

PATIENT

DRUGS (6)
  1. GUADECITABINE [Suspect]
     Active Substance: GUADECITABINE
     Indication: OVARIAN CANCER RECURRENT
     Dosage: 45 MG/M2, QD ON DAYS 1 TO 5 OF 28-DAY CYCLES
     Route: 058
  2. GUADECITABINE [Suspect]
     Active Substance: GUADECITABINE
     Indication: METASTASES TO PERITONEUM
  3. CARBOPLATIN. [Suspect]
     Active Substance: CARBOPLATIN
     Indication: OVARIAN CANCER RECURRENT
     Dosage: UNK, PREVIOUSLY
     Route: 065
  4. PACLITAXEL. [Suspect]
     Active Substance: PACLITAXEL
     Indication: OVARIAN CANCER RECURRENT
     Dosage: UNK
     Route: 065
  5. CARBOPLATIN. [Suspect]
     Active Substance: CARBOPLATIN
     Indication: METASTASES TO PERITONEUM
     Dosage: AUC5, ON DAY 8 OF 28-DAY CYCLES
  6. PACLITAXEL. [Suspect]
     Active Substance: PACLITAXEL
     Indication: METASTASES TO PERITONEUM

REACTIONS (2)
  - Sepsis [Fatal]
  - Drug resistance [Unknown]
